FAERS Safety Report 23976256 (Version 1)
Quarter: 2024Q2

REPORT INFORMATION
  Report Type: Spontaneous
  Country: US (occurrence: None)
  Receive Date: 20240613
  Receipt Date: 20240613
  Transmission Date: 20240716
  Serious: Yes (Hospitalization, Other)
  Sender: FDA-Public Use
  Company Number: None

PATIENT
  Age: 20 Year
  Sex: Female
  Weight: 146.25 kg

DRUGS (10)
  1. PROPRANOLOL [Suspect]
     Active Substance: PROPRANOLOL HYDROCHLORIDE
     Indication: Migraine prophylaxis
     Dosage: FREQUENCY : TWICE A DAY;?
     Route: 048
  2. IRON [Concomitant]
     Active Substance: IRON
  3. ONDANSETRON [Concomitant]
     Active Substance: ONDANSETRON
  4. SUMATRIPTAN [Concomitant]
     Active Substance: SUMATRIPTAN
  5. TOPIRAMATE [Concomitant]
     Active Substance: TOPIRAMATE
  6. FAMOTIDINE [Concomitant]
     Active Substance: FAMOTIDINE
  7. ESCITALOPRAM [Concomitant]
     Active Substance: ESCITALOPRAM OXALATE
  8. MELATONIN [Concomitant]
     Active Substance: MELATONIN
  9. IBUPROFEN [Concomitant]
     Active Substance: IBUPROFEN
  10. ACETAMINOPHEN [Concomitant]
     Active Substance: ACETAMINOPHEN

REACTIONS (2)
  - Chest pain [None]
  - Dyspnoea [None]

NARRATIVE: CASE EVENT DATE: 20240514
